FAERS Safety Report 9459247 (Version 1)
Quarter: 2013Q3

REPORT INFORMATION
  Report Type: Report from Study
  Country: JP (occurrence: JP)
  Receive Date: 20130814
  Receipt Date: 20130814
  Transmission Date: 20140515
  Serious: Yes (Other)
  Sender: FDA-Public Use
  Company Number: JP-009507513-2007SP010923

PATIENT
  Age: 31 Year
  Sex: Female
  Weight: 49 kg

DRUGS (76)
  1. TEMODAL [Suspect]
     Indication: ANAPLASTIC ASTROCYTOMA
     Dosage: 150 MG/M2, QD
     Route: 048
     Dates: start: 20110516, end: 20110520
  2. TEMODAL [Suspect]
     Dosage: 150 MG/M2, QD
     Route: 048
     Dates: start: 20110620, end: 20110624
  3. TEMODAL [Suspect]
     Dosage: 150 MG/M2, QD
     Route: 048
     Dates: start: 20110727, end: 20110731
  4. TEMODAL [Suspect]
     Dosage: 150 MG/M2, QD
     Route: 048
     Dates: start: 20110822, end: 20110826
  5. TEMODAL [Suspect]
     Dosage: 150 MG/M2, QD
     Route: 048
     Dates: start: 20110921, end: 20110925
  6. TEMODAL [Suspect]
     Dosage: 150 MG/M2, QD
     Route: 048
     Dates: start: 20111019, end: 20111023
  7. TEMODAL [Suspect]
     Dosage: 150 MG/M2, QD
     Route: 048
     Dates: start: 20111109, end: 20111113
  8. TEMODAL [Suspect]
     Dosage: 150 MG/M2, QD
     Route: 048
     Dates: start: 20111221, end: 20111225
  9. TEMODAL [Suspect]
     Dosage: 150 MG/M2, QD
     Route: 048
     Dates: start: 20120125, end: 20120129
  10. TEMODAL [Suspect]
     Dosage: 150 MG/M2, QD
     Route: 048
     Dates: start: 20120222, end: 20120226
  11. TEMODAL [Suspect]
     Dosage: 150 MG/M2, QD
     Route: 048
     Dates: start: 20120328, end: 20120401
  12. TEMODAL [Suspect]
     Dosage: 150 MG/M2, QD
     Route: 048
     Dates: start: 20120425, end: 20120429
  13. TEMODAL [Suspect]
     Dosage: 150 MG/M2, QD
     Route: 048
     Dates: start: 20120530, end: 20120603
  14. TEMODAL [Suspect]
     Dosage: 150 MG/M2, QD
     Route: 048
     Dates: start: 20120627, end: 20120701
  15. TEMODAL [Suspect]
     Dosage: 150 MG/M2, QD
     Route: 048
     Dates: start: 20120725, end: 20120729
  16. TEMODAL [Suspect]
     Dosage: 150 MG/M2, QD
     Route: 048
     Dates: start: 20120827, end: 20120831
  17. TEMODAL [Suspect]
     Dosage: 150 MG/M2, QD
     Route: 048
     Dates: start: 20120926, end: 20120930
  18. TEMODAL [Suspect]
     Dosage: 150 MG/M2, QD
     Route: 048
     Dates: start: 20121024, end: 20121028
  19. TEMODAL [Suspect]
     Dosage: 150 MG/M2, QD
     Route: 048
     Dates: start: 20121121, end: 20121125
  20. TEMODAL [Suspect]
     Dosage: 150 MG/M2, QD
     Route: 048
     Dates: start: 20121219, end: 20121223
  21. TEMOZOLOMIDE [Suspect]
     Indication: ANAPLASTIC ASTROCYTOMA
     Dosage: 75 MG/M2, QD
     Route: 048
     Dates: start: 20070209, end: 20070322
  22. TEMOZOLOMIDE [Suspect]
     Dosage: 150 MG/M2, QD
     Route: 048
     Dates: start: 20070514, end: 20070518
  23. TEMOZOLOMIDE [Suspect]
     Dosage: 150 MG/M2, QD
     Route: 048
     Dates: start: 20070627, end: 20070701
  24. TEMOZOLOMIDE [Suspect]
     Dosage: 150 MG/M2, QD
     Route: 048
     Dates: start: 20070725, end: 20070729
  25. TEMOZOLOMIDE [Suspect]
     Dosage: 150 MG/M2, QD
     Route: 048
     Dates: start: 20070822, end: 20070826
  26. TEMOZOLOMIDE [Suspect]
     Dosage: 150 MG/M2, QD
     Route: 048
     Dates: start: 20070919, end: 20070923
  27. TEMOZOLOMIDE [Suspect]
     Dosage: 150 MG/M2, QD
     Route: 048
     Dates: start: 20071017, end: 20071021
  28. TEMOZOLOMIDE [Suspect]
     Dosage: 150 MG/M2, QD
     Route: 048
     Dates: start: 20071114, end: 20071118
  29. TEMOZOLOMIDE [Suspect]
     Dosage: 150 MG/M2, QD
     Route: 048
     Dates: start: 20071212, end: 20071216
  30. TEMOZOLOMIDE [Suspect]
     Dosage: 150 MG/M2, QD
     Route: 048
     Dates: start: 20080116, end: 20080120
  31. TEMOZOLOMIDE [Suspect]
     Dosage: 150 MG/M2, QD
     Route: 048
     Dates: start: 20080213, end: 20080217
  32. TEMOZOLOMIDE [Suspect]
     Dosage: 150 MG/M2, QD
     Route: 048
     Dates: start: 20080312, end: 20080316
  33. TEMOZOLOMIDE [Suspect]
     Dosage: 150 MG/M2, QD
     Route: 048
     Dates: start: 20080409, end: 20080413
  34. TEMOZOLOMIDE [Suspect]
     Dosage: 150 MG/M2, QD
     Route: 048
     Dates: start: 20080507, end: 20080511
  35. TEMOZOLOMIDE [Suspect]
     Dosage: 150 MG/M2, QD
     Route: 048
     Dates: start: 20080604, end: 20080608
  36. TEMOZOLOMIDE [Suspect]
     Dosage: 150 MG/M2, QD
     Route: 048
     Dates: start: 20080702, end: 20080706
  37. TEMOZOLOMIDE [Suspect]
     Dosage: 150 MG/M2, QD
     Route: 048
     Dates: start: 20080806, end: 20080810
  38. TEMOZOLOMIDE [Suspect]
     Dosage: 150 MG/M2, QD
     Route: 048
     Dates: start: 20080903, end: 20080907
  39. TEMOZOLOMIDE [Suspect]
     Dosage: 150 MG/M2, QD
     Route: 048
     Dates: start: 20081008, end: 20081012
  40. TEMOZOLOMIDE [Suspect]
     Dosage: 150 MG/M2, QD
     Route: 048
     Dates: start: 20081105, end: 20081109
  41. TEMOZOLOMIDE [Suspect]
     Dosage: 150 MG/M2, QD
     Route: 048
     Dates: start: 20081203, end: 20081207
  42. TEMOZOLOMIDE [Suspect]
     Dosage: 150 MG/M2, QD
     Route: 048
     Dates: start: 20090107, end: 20090111
  43. TEMOZOLOMIDE [Suspect]
     Dosage: 150 MG/M2, QD
     Route: 048
     Dates: start: 20090204, end: 20090208
  44. TEMOZOLOMIDE [Suspect]
     Dosage: 150 MG/M2, QD
     Route: 048
     Dates: start: 20090302, end: 20090306
  45. TEMOZOLOMIDE [Suspect]
     Dosage: 150 MG/M2, QD
     Route: 048
     Dates: start: 20090408, end: 20090412
  46. TEMOZOLOMIDE [Suspect]
     Dosage: 150 MG/M2, QD
     Route: 048
     Dates: start: 20090518, end: 20090522
  47. TEMOZOLOMIDE [Suspect]
     Dosage: 150 MG/M2, QD
     Route: 048
     Dates: start: 20090617, end: 20090621
  48. TEMOZOLOMIDE [Suspect]
     Dosage: 150 MG/M2, QD
     Route: 048
     Dates: start: 20090715, end: 20090719
  49. TEMOZOLOMIDE [Suspect]
     Dosage: 150 MG/M2, QD
     Route: 048
     Dates: start: 20090812, end: 20090816
  50. TEMOZOLOMIDE [Suspect]
     Dosage: 150 MG/M2, QD
     Route: 048
     Dates: start: 20090916, end: 20090920
  51. TEMOZOLOMIDE [Suspect]
     Dosage: 150 MG/M2, QD
     Route: 048
     Dates: start: 20091021, end: 20091025
  52. TEMOZOLOMIDE [Suspect]
     Dosage: 150 MG/M2, QD
     Route: 048
     Dates: start: 20091202, end: 20091206
  53. TEMOZOLOMIDE [Suspect]
     Dosage: 150 MG/M2, QD
     Route: 048
     Dates: start: 20091228, end: 20100101
  54. TEMOZOLOMIDE [Suspect]
     Dosage: 150 MG/M2, QD
     Route: 048
     Dates: start: 20100127, end: 20100131
  55. TEMOZOLOMIDE [Suspect]
     Dosage: 150 MG/M2, QD
     Route: 048
     Dates: start: 20100224, end: 20100228
  56. TEMOZOLOMIDE [Suspect]
     Dosage: 150 MG/M2, QD
     Route: 048
     Dates: start: 20100324, end: 20100328
  57. TEMOZOLOMIDE [Suspect]
     Dosage: 150 MG/M2, QD
     Route: 048
     Dates: start: 20100421, end: 20100425
  58. TEMOZOLOMIDE [Suspect]
     Dosage: 150 MG/M2, QD
     Route: 048
     Dates: start: 20100517, end: 20100521
  59. TEMOZOLOMIDE [Suspect]
     Dosage: 150 MG/M2, QD
     Route: 048
     Dates: start: 20100628, end: 20100702
  60. TEMOZOLOMIDE [Suspect]
     Dosage: 150 MG/M2, QD
     Route: 048
     Dates: start: 20100726, end: 20100730
  61. TEMOZOLOMIDE [Suspect]
     Dosage: 150 MG/M2, QD
     Route: 048
     Dates: start: 20100830, end: 20100903
  62. TEMOZOLOMIDE [Suspect]
     Dosage: 150 MG/M2, QD
     Route: 048
     Dates: start: 20100929, end: 20101003
  63. TEMOZOLOMIDE [Suspect]
     Dosage: 150 MG/M2, QD
     Route: 048
     Dates: start: 20101027, end: 20101031
  64. TEMOZOLOMIDE [Suspect]
     Dosage: 150 MG/M2, QD
     Route: 048
     Dates: start: 20101124, end: 20101128
  65. TEMOZOLOMIDE [Suspect]
     Dosage: 150 MG/M2, QD
     Route: 048
     Dates: start: 20101222, end: 20101226
  66. TEMOZOLOMIDE [Suspect]
     Dosage: 150 MG/M2, QD
     Route: 048
     Dates: start: 20110126, end: 20110130
  67. TEMOZOLOMIDE [Suspect]
     Dosage: 150 MG/M2, QD
     Route: 048
     Dates: start: 20110223, end: 20110227
  68. TEMOZOLOMIDE [Suspect]
     Dosage: 150 MG/M2, QD
     Route: 048
     Dates: start: 20110323, end: 20110327
  69. TEMOZOLOMIDE [Suspect]
     Dosage: 150 MG/M2, QD
     Route: 048
     Dates: start: 20110420, end: 20110424
  70. TEMOZOLOMIDE [Suspect]
     Dosage: UNK
  71. BAKTAR [Concomitant]
     Indication: ANTIFUNGAL PROPHYLAXIS
     Dosage: FOR-POR
     Route: 048
     Dates: start: 20070209
  72. PREDONINE [Concomitant]
     Dosage: UNK
     Route: 041
     Dates: start: 20070501
  73. PREDONINE [Concomitant]
     Dosage: UNK
     Route: 048
     Dates: start: 20070509
  74. ANTIVIRAL (UNSPECIFIED) [Concomitant]
     Route: 048
     Dates: start: 20070425
  75. TAGAMET [Concomitant]
     Indication: PROPHYLAXIS
     Dosage: DAILY DOSE UNKNOWN
     Route: 048
     Dates: start: 20070501, end: 20100725
  76. KYTRIL [Concomitant]
     Indication: PROPHYLAXIS
     Dosage: DAILY DOSE UNKNOWN, FORMULATION: POR
     Route: 048
     Dates: start: 20070209

REACTIONS (5)
  - Pulmonary tuberculosis [Recovered/Resolved]
  - Hepatitis B [Recovering/Resolving]
  - Lymphocyte count decreased [Not Recovered/Not Resolved]
  - White blood cell count decreased [Recovered/Resolved]
  - Hyperlipidaemia [Not Recovered/Not Resolved]
